FAERS Safety Report 4621522-4 (Version None)
Quarter: 2005Q1

REPORT INFORMATION
  Report Type: 
  Country: None (occurrence: None)
  Receive Date: 20050328
  Receipt Date: 20020910
  Transmission Date: 20050727
  Serious: No
  Sender: FDA-Public Use
  Company Number: 6020

PATIENT
  Age: 53 Year
  Sex: Female

DRUGS (8)
  1. AMIODARONE [Suspect]
     Indication: ATRIAL FIBRILLATION
     Dosage: 200 MG
  2. DIGOXIN [Suspect]
     Indication: ATRIAL FIBRILLATION
     Dosage: 250 MICROGRAM
  3. PHENOXYMETHYLPENICILLIN [Suspect]
     Indication: ATRIAL FIBRILLATION
  4. FRUSEMIDE [Suspect]
     Indication: ATRIAL FIBRILLATION
     Dosage: 40 MG
  5. AMILORIDE [Suspect]
     Indication: ATRIAL FIBRILLATION
     Dosage: 5 MG
  6. METOPROLOL TARTRATE [Suspect]
     Indication: ATRIAL FIBRILLATION
     Dosage: 375 MG
  7. FERROUS SULFATE TAB [Suspect]
     Indication: ATRIAL FIBRILLATION
     Dosage: 600 MG
  8. WARFARIN SODIUM [Suspect]

REACTIONS (2)
  - DYSPNOEA [None]
  - PALPITATIONS [None]
